FAERS Safety Report 8453932-1 (Version None)
Quarter: 2012Q2

REPORT INFORMATION
  Report Type: 
  Country: None (occurrence: None)
  Receive Date: 20120620
  Receipt Date: 20120614
  Transmission Date: 20120825
  Serious: Yes (Other)
  Sender: FDA-Public Use
  Company Number: SE-PFIZER INC-2012144272

PATIENT
  Age: 64 Year
  Sex: Male

DRUGS (1)
  1. RAMIPRIL [Suspect]
     Indication: BLOOD PRESSURE INCREASED
     Dosage: 5 MG, DAILY
     Dates: start: 20100101, end: 20100101

REACTIONS (3)
  - NEUROPATHY PERIPHERAL [None]
  - MENTAL DISORDER [None]
  - SYSTEMIC LUPUS ERYTHEMATOSUS [None]
